FAERS Safety Report 10661627 (Version 1)
Quarter: 2014Q4

REPORT INFORMATION
  Report Type: Spontaneous
  Country: US (occurrence: US)
  Receive Date: 20141218
  Receipt Date: 20141218
  Transmission Date: 20150529
  Serious: Yes (Other)
  Sender: FDA-Public Use
  Company Number: US-PFIZER INC-2014342922

PATIENT
  Age: 53 Year
  Sex: Female
  Weight: 68.48 kg

DRUGS (14)
  1. RAPAMUNE [Suspect]
     Active Substance: SIROLIMUS
     Indication: CHRONIC HEPATITIS
     Dosage: 1 MG, 3X/DAY
     Route: 048
  2. RAPAMUNE [Suspect]
     Active Substance: SIROLIMUS
     Indication: HEPATITIS CHRONIC PERSISTENT
  3. LINZESS [Concomitant]
     Active Substance: LINACLOTIDE
     Dosage: 145 ?G, DAILY
     Route: 048
     Dates: start: 20131017
  4. TOPAMAX [Concomitant]
     Active Substance: TOPIRAMATE
     Dosage: 100 MG, DAILY
     Route: 048
  5. MYSOLINE [Concomitant]
     Active Substance: PRIMIDONE
     Dosage: 250 MG, 3X/DAY
     Route: 048
  6. PREDNISONE. [Concomitant]
     Active Substance: PREDNISONE
     Dosage: 10 MG, DAILY
     Route: 048
  7. RAPAMUNE [Suspect]
     Active Substance: SIROLIMUS
     Indication: HEPATIC ENCEPHALOPATHY
  8. LACTULOSE. [Concomitant]
     Active Substance: LACTULOSE
     Dosage: 2 DF, DAILY ((2 (TWO) DAILY)
     Dates: start: 20110916
  9. URSODIOL. [Concomitant]
     Active Substance: URSODIOL
     Dosage: 300 MG, 2X/DAY
     Route: 048
  10. RAPAMUNE [Suspect]
     Active Substance: SIROLIMUS
     Indication: HEPATIC CIRRHOSIS
  11. TRANSDERM SCOP [Concomitant]
     Active Substance: SCOPOLAMINE
     Dosage: 1 DF, AS NEEDED (1.5MG PATCH 72HR, 1 TRANSDERMAL AS NEEDED)
     Dates: start: 20131017
  12. LIPITOR [Suspect]
     Active Substance: ATORVASTATIN CALCIUM
     Dosage: UNK
     Route: 048
  13. NEXIUM [Concomitant]
     Active Substance: ESOMEPRAZOLE MAGNESIUM
     Dosage: 40 MG, DAILY
     Route: 048
  14. ACTIGALL [Concomitant]
     Active Substance: URSODIOL
     Dosage: 300 MG, 2X/DAY
     Route: 048

REACTIONS (21)
  - Fatigue [Unknown]
  - Malaise [Unknown]
  - Granuloma [Unknown]
  - Weight decreased [Unknown]
  - Pneumonia [Unknown]
  - Decreased appetite [Unknown]
  - Tachycardia [Unknown]
  - Dyspepsia [Unknown]
  - Pollakiuria [Unknown]
  - Condition aggravated [Unknown]
  - Headache [Unknown]
  - Asthenia [Unknown]
  - Diarrhoea [Unknown]
  - Nausea [Unknown]
  - Abdominal pain [Unknown]
  - Dehydration [Unknown]
  - Vomiting [Unknown]
  - Dizziness [Unknown]
  - Abdominal tenderness [Unknown]
  - Cough [Unknown]
  - Dyspnoea [Unknown]
